FAERS Safety Report 22526621 (Version 1)
Quarter: 2023Q2

REPORT INFORMATION
  Report Type: Spontaneous
  Country: US (occurrence: US)
  Receive Date: 20230606
  Receipt Date: 20230606
  Transmission Date: 20230721
  Serious: Yes (Other)
  Sender: FDA-Public Use
  Company Number: US-PFIZER INC-202300209271

PATIENT
  Age: 5 Year
  Sex: Female
  Weight: 18.6 kg

DRUGS (1)
  1. OXBRYTA [Suspect]
     Active Substance: VOXELOTOR
     Indication: Pain
     Dosage: 2 DF, DAILY (2 DISSOLVABLE TABLETS TAKES EVERY DAY)

REACTIONS (6)
  - Oropharyngeal pain [Recovered/Resolved]
  - Back pain [Not Recovered/Not Resolved]
  - Dysphagia [Unknown]
  - Pyrexia [Unknown]
  - Constipation [Unknown]
  - Pain in extremity [Not Recovered/Not Resolved]

NARRATIVE: CASE EVENT DATE: 20230501
